FAERS Safety Report 24730993 (Version 1)
Quarter: 2024Q4

REPORT INFORMATION
  Report Type: Spontaneous
  Country: US (occurrence: US)
  Receive Date: 20241213
  Receipt Date: 20241213
  Transmission Date: 20250115
  Serious: Yes (Other)
  Sender: BAYER HEALTHCARE PHARMACEUTICALS INC.
  Company Number: US-BAYER-2024A173476

PATIENT
  Age: 35 Year
  Sex: Female

DRUGS (2)
  1. ADEMPAS [Suspect]
     Active Substance: RIOCIGUAT
     Dosage: UNK
  2. ADEMPAS [Suspect]
     Active Substance: RIOCIGUAT
     Dosage: 70 TABLETS
     Dates: start: 20241127, end: 20241127

REACTIONS (2)
  - Shock [Recovered/Resolved]
  - Intentional overdose [None]

NARRATIVE: CASE EVENT DATE: 20241127
